FAERS Safety Report 8597325-5 (Version None)
Quarter: 2012Q3

REPORT INFORMATION
  Report Type: 
  Country: None (occurrence: None)
  Receive Date: 20120816
  Receipt Date: 20120808
  Transmission Date: 20120928
  Serious: No
  Sender: FDA-Public Use
  Company Number: US-PFIZER INC-2012198609

PATIENT
  Age: 58 Year
  Sex: Female
  Weight: 90.249 kg

DRUGS (1)
  1. CELEBREX [Suspect]

REACTIONS (1)
  - DRUG HYPERSENSITIVITY [None]
